FAERS Safety Report 23299420 (Version 1)
Quarter: 2023Q4

REPORT INFORMATION
  Report Type: Spontaneous
  Country: JP (occurrence: JP)
  Receive Date: 20231215
  Receipt Date: 20231215
  Transmission Date: 20240109
  Serious: Yes (Other)
  Sender: FDA-Public Use
  Company Number: JP-Merck Healthcare KGaA-2023485466

PATIENT
  Sex: Male

DRUGS (1)
  1. GONAL-F [Suspect]
     Active Substance: FOLLITROPIN
     Indication: Product used for unknown indication
     Route: 058

REACTIONS (1)
  - Fracture [Unknown]

NARRATIVE: CASE EVENT DATE: 20231101
